FAERS Safety Report 5872588-5 (Version None)
Quarter: 2008Q3

REPORT INFORMATION
  Report Type: 
  Country: None (occurrence: None)
  Receive Date: 20080905
  Receipt Date: 20080829
  Transmission Date: 20090109
  Serious: Yes (Other)
  Sender: FDA-Public Use
  Company Number: US-JNJCH-2008022701

PATIENT
  Age: 63 Year
  Sex: Female
  Weight: 68 kg

DRUGS (1)
  1. VISINE-A [Suspect]
     Indication: EYE PRURITUS
     Dosage: TEXT:2 DROPS IN EACH EYE ONCE
     Route: 047

REACTIONS (1)
  - EYE IRRITATION [None]
